FAERS Safety Report 24177437 (Version 1)
Quarter: 2024Q3

REPORT INFORMATION
  Report Type: Spontaneous
  Country: US (occurrence: US)
  Receive Date: 20240806
  Receipt Date: 20240806
  Transmission Date: 20241016
  Serious: Yes (Hospitalization, Disabling)
  Sender: STRIDES
  Company Number: US-STRIDES ARCOLAB LIMITED-2024SP001473

PATIENT
  Sex: Female
  Weight: 58.957 kg

DRUGS (1)
  1. TRANYLCYPROMINE SULFATE [Suspect]
     Active Substance: TRANYLCYPROMINE SULFATE
     Indication: Depression
     Dosage: 90 MILLIGRAM, PER DAY (09 TIMES A DAY), TABLET
     Route: 048

REACTIONS (1)
  - Drug ineffective [Unknown]
